FAERS Safety Report 5135768-2 (Version None)
Quarter: 2006Q4

REPORT INFORMATION
  Report Type: 
  Country: None (occurrence: None)
  Receive Date: 20061024
  Receipt Date: 20061024
  Transmission Date: 20070319
  Serious: Yes (Other)
  Sender: FDA-Public Use
  Company Number: None

PATIENT
  Sex: Male

DRUGS (11)
  1. DULOXETINE 60 MG [Suspect]
     Indication: PAIN
     Dosage: 60 MG    DAILY  PO
     Route: 048
     Dates: start: 20051229, end: 20060101
  2. ALBUTEROL [Concomitant]
  3. ASPIRIN [Concomitant]
  4. DOCUSATE [Concomitant]
  5. FELODIPINE [Concomitant]
  6. FLUNISOLIDE NASAL [Concomitant]
  7. GLYBURIDE [Concomitant]
  8. TRIAMTERENE AND HYDROCHLOROTHIAZIDE [Concomitant]
  9. METFORMIN HCL [Concomitant]
  10. METHADONE HCL [Concomitant]
  11. SILDENAFIL [Concomitant]

REACTIONS (3)
  - HYPERHIDROSIS [None]
  - PHOTOPHOBIA [None]
  - SOMNOLENCE [None]
